FAERS Safety Report 11273631 (Version 1)
Quarter: 2015Q3

REPORT INFORMATION
  Report Type: Spontaneous
  Country: DE (occurrence: DE)
  Receive Date: 20150715
  Receipt Date: 20150715
  Transmission Date: 20151125
  Serious: Yes (Congenital Anomaly, Other)
  Sender: FDA-Public Use
  Company Number: DE-ROXANE LABORATORIES, INC.-2015-RO-01130RO

PATIENT
  Sex: Male
  Weight: 2.2 kg

DRUGS (3)
  1. ETANERCEPT [Suspect]
     Active Substance: ETANERCEPT
     Indication: EXPOSURE DURING PREGNANCY
     Route: 064
  2. PREDNISONE. [Suspect]
     Active Substance: PREDNISONE
     Indication: EXPOSURE DURING PREGNANCY
     Route: 064
  3. FLUCONAZOLE. [Suspect]
     Active Substance: FLUCONAZOLE
     Indication: EXPOSURE DURING PREGNANCY
     Route: 064

REACTIONS (4)
  - Premature baby [Unknown]
  - Hypospadias [Unknown]
  - Hypoplastic left heart syndrome [Unknown]
  - Low birth weight baby [Unknown]
